FAERS Safety Report 4492366-1 (Version None)
Quarter: 2004Q3

REPORT INFORMATION
  Report Type: 
  Country: None (occurrence: None)
  Receive Date: 20040921
  Receipt Date: 20030730
  Transmission Date: 20050211
  Serious: Yes (Death, Hospitalization)
  Sender: FDA-Public Use
  Company Number: 163-20785-03080034

PATIENT
  Age: 62 Year
  Sex: Male
  Weight: 76.7 kg

DRUGS (2)
  1. THALOMID [Suspect]
     Indication: METASTASES TO CENTRAL NERVOUS SYSTEM
     Dosage: 300 MG, DAILY, ORAL
     Route: 048
     Dates: start: 20030110, end: 20030227
  2. CARBOPLATIN [Suspect]
     Indication: DRUG USE FOR UNKNOWN INDICATION

REACTIONS (11)
  - DEATH [None]
  - DEHYDRATION [None]
  - INFECTION [None]
  - INTUBATION [None]
  - NAUSEA [None]
  - NEUTROPENIA [None]
  - ORAL CANDIDIASIS [None]
  - OXYGEN SATURATION DECREASED [None]
  - RADIATION SKIN INJURY [None]
  - RESPIRATORY DISTRESS [None]
  - VOMITING [None]
